FAERS Safety Report 5196800-3 (Version None)
Quarter: 2006Q4

REPORT INFORMATION
  Report Type: 
  Country: None (occurrence: None)
  Receive Date: 20061227
  Receipt Date: 20061212
  Transmission Date: 20070319
  Serious: Yes (Hospitalization, Other)
  Sender: FDA-Public Use
  Company Number: 2006152518

PATIENT
  Age: 5 Year
  Sex: Male
  Weight: 18.1439 kg

DRUGS (3)
  1. ZYRTEC [Suspect]
     Indication: HYPERSENSITIVITY
  2. MULTIVITAMIN [Concomitant]
  3. FOCALIN [Concomitant]

REACTIONS (7)
  - ANOREXIA [None]
  - ATTENTION DEFICIT/HYPERACTIVITY DISORDER [None]
  - GROWTH RETARDATION [None]
  - OBSESSIVE-COMPULSIVE DISORDER [None]
  - SINUSITIS [None]
  - STRABISMUS [None]
  - TOURETTE'S DISORDER [None]
